FAERS Safety Report 25514795 (Version 1)
Quarter: 2025Q3

REPORT INFORMATION
  Report Type: Report from Study
  Country: US (occurrence: US)
  Receive Date: 20250703
  Receipt Date: 20250703
  Transmission Date: 20251021
  Serious: No
  Sender: MALLINCKRODT
  Company Number: US-MALLINCKRODT-MNK202503678

PATIENT
  Age: 73 Year
  Sex: Male

DRUGS (9)
  1. CORTICOTROPIN [Suspect]
     Active Substance: CORTICOTROPIN
     Indication: Iridocyclitis
     Route: 058
     Dates: start: 20250517
  2. CORTICOTROPIN [Suspect]
     Active Substance: CORTICOTROPIN
     Indication: Dry eye
  3. REFRESH RELIEVA PF [Concomitant]
     Active Substance: CARBOXYMETHYLCELLULOSE SODIUM\GLYCERIN
  4. REFRESH PM [PARAFFIN, LIQUID;WHITE SOFT PARAFFIN] [Concomitant]
  5. ERYTHROMYCIN STEARATE [Concomitant]
     Active Substance: ERYTHROMYCIN STEARATE
  6. GATIFLOXACIN [Concomitant]
     Active Substance: GATIFLOXACIN
  7. DIFLUPREDNATE [Concomitant]
     Active Substance: DIFLUPREDNATE
     Dosage: UNKNOWN
  8. IYUZEH [Concomitant]
     Active Substance: LATANOPROST
  9. BRIMONIDINE [Concomitant]
     Active Substance: BRIMONIDINE TARTRATE
     Dosage: UNKNOWN

REACTIONS (1)
  - Visual impairment [Unknown]

NARRATIVE: CASE EVENT DATE: 20250101
